FAERS Safety Report 7877776-4 (Version None)
Quarter: 2011Q4

REPORT INFORMATION
  Report Type: 
  Country: None (occurrence: None)
  Receive Date: 20111031
  Receipt Date: 20111031
  Transmission Date: 20120403
  Serious: Yes (Other)
  Sender: FDA-Public Use
  Company Number: None

PATIENT
  Age: 50 Year
  Sex: Female
  Weight: 87.543 kg

DRUGS (2)
  1. CHILDREN'S WAL-DRYL ALLERGY [Suspect]
     Indication: MULTIPLE ALLERGIES
     Dosage: 2-4 TSP -25-50 MG- FOR ADULTS
     Route: 048
     Dates: start: 20111028, end: 20111028
  2. CHILDREN'S WAL-DRYL ALLERGY [Suspect]
     Indication: FOOD ALLERGY
     Dosage: 2-4 TSP -25-50 MG- FOR ADULTS
     Route: 048
     Dates: start: 20111028, end: 20111028

REACTIONS (2)
  - PRODUCT SUBSTITUTION ISSUE [None]
  - BLOOD PRESSURE INCREASED [None]
